FAERS Safety Report 17850860 (Version 1)
Quarter: 2020Q2

REPORT INFORMATION
  Report Type: Spontaneous
  Country: US (occurrence: US)
  Receive Date: 20200602
  Receipt Date: 20200602
  Transmission Date: 20200714
  Serious: No
  Sender: FDA-Public Use
  Company Number: US-SA-2020SA140358

PATIENT

DRUGS (3)
  1. DUPIXENT [Suspect]
     Active Substance: DUPILUMAB
     Indication: ASPIRIN-EXACERBATED RESPIRATORY DISEASE
  2. DUPIXENT [Suspect]
     Active Substance: DUPILUMAB
     Indication: EOSINOPHILIC OESOPHAGITIS
  3. DUPIXENT [Suspect]
     Active Substance: DUPILUMAB
     Indication: ASTHMA
     Dosage: UNK
     Route: 065
     Dates: start: 202004

REACTIONS (2)
  - Therapeutic response unexpected [Unknown]
  - Off label use [Unknown]

NARRATIVE: CASE EVENT DATE: 2020
